APPROVED DRUG PRODUCT: YONSA
Active Ingredient: ABIRATERONE ACETATE
Strength: 125MG
Dosage Form/Route: TABLET;ORAL
Application: N210308 | Product #001
Applicant: SUN PHARMACEUTICAL INDUSTRIES LTD
Approved: May 22, 2018 | RLD: Yes | RS: Yes | Type: RX

PATENTS:
Patent 10292990 | Expires: May 20, 2034
Patent 9889144 | Expires: Mar 17, 2034